FAERS Safety Report 17710084 (Version 4)
Quarter: 2020Q4

REPORT INFORMATION
  Report Type: Report from Study
  Country: None (occurrence: US)
  Receive Date: 20200427
  Receipt Date: 20201210
  Transmission Date: 20210113
  Serious: Yes (Other)
  Sender: FDA-Public Use
  Company Number: US-ABBVIE-19K-163-2884905-00

PATIENT
  Sex: Female

DRUGS (3)
  1. HUMIRA [Suspect]
     Active Substance: ADALIMUMAB
     Route: 058
  2. HUMIRA [Suspect]
     Active Substance: ADALIMUMAB
     Route: 058
  3. HUMIRA [Suspect]
     Active Substance: ADALIMUMAB
     Indication: HIDRADENITIS
     Route: 058

REACTIONS (23)
  - Ear operation [Unknown]
  - Rotator cuff syndrome [Unknown]
  - Rheumatoid arthritis [Unknown]
  - Back pain [Unknown]
  - Trigger finger [Unknown]
  - Contusion [Unknown]
  - Pain in extremity [Unknown]
  - Surgery [Unknown]
  - Musculoskeletal disorder [Unknown]
  - Mobility decreased [Unknown]
  - Knee arthroplasty [Unknown]
  - Vertigo [Not Recovered/Not Resolved]
  - Arthropathy [Unknown]
  - Dysstasia [Unknown]
  - Gait disturbance [Unknown]
  - Peripheral swelling [Unknown]
  - Hypertension [Unknown]
  - Overweight [Unknown]
  - Fall [Unknown]
  - Sleep apnoea syndrome [Unknown]
  - Foot operation [Unknown]
  - Tendonitis [Unknown]
  - Back disorder [Unknown]

NARRATIVE: CASE EVENT DATE: 2020
